FAERS Safety Report 16788675 (Version 2)
Quarter: 2019Q4

REPORT INFORMATION
  Report Type: Spontaneous
  Country: US (occurrence: US)
  Receive Date: 20190910
  Receipt Date: 20191030
  Transmission Date: 20200122
  Serious: No
  Sender: FDA-Public Use
  Company Number: US-JNJFOC-20190819229

PATIENT
  Age: 45 Year
  Sex: Male
  Weight: 95.34 kg

DRUGS (3)
  1. WOMENS ROGAINE [Suspect]
     Active Substance: MINOXIDIL
     Indication: ALOPECIA
     Dosage: ONE APPLICATOR FULL
     Route: 061
     Dates: start: 20190803, end: 20190810
  2. WOMENS ROGAINE [Suspect]
     Active Substance: MINOXIDIL
     Dosage: ONE APPLICATOR FULL
     Route: 061
     Dates: end: 20190811
  3. LOSARTAN. [Concomitant]
     Active Substance: LOSARTAN
     Indication: HYPERTENSION
     Dates: start: 201603

REACTIONS (10)
  - Application site scab [Recovering/Resolving]
  - Application site swelling [Recovering/Resolving]
  - Dermatitis contact [Recovered/Resolved]
  - Product storage error [Recovering/Resolving]
  - Off label use [Unknown]
  - Paraesthesia [Recovered/Resolved]
  - Application site vesicles [Recovered/Resolved]
  - Application site irritation [Recovering/Resolving]
  - Application site pain [Recovered/Resolved]
  - Product use issue [Recovering/Resolving]

NARRATIVE: CASE EVENT DATE: 20190803
